FAERS Safety Report 10221858 (Version 1)
Quarter: 2014Q2

REPORT INFORMATION
  Report Type: Spontaneous
  Country: US (occurrence: US)
  Receive Date: 20140606
  Receipt Date: 20140606
  Transmission Date: 20141212
  Serious: No
  Sender: FDA-Public Use
  Company Number: US-009507513-1406USA002065

PATIENT
  Sex: 0
  Weight: 76.19 kg

DRUGS (2)
  1. NEXPLANON [Suspect]
     Dosage: 68 MG/ 1 ROD INSERTED EVERY THREE YEARS
     Route: 059
     Dates: start: 20140515, end: 20140515
  2. NEXPLANON [Suspect]
     Dosage: 1 ROD
     Route: 059
     Dates: start: 20140515

REACTIONS (2)
  - Device difficult to use [Recovered/Resolved]
  - No adverse event [Unknown]
